FAERS Safety Report 5072181-0 (Version None)
Quarter: 2006Q3

REPORT INFORMATION
  Report Type: 
  Country: None (occurrence: None)
  Receive Date: 20060731
  Receipt Date: 20060731
  Transmission Date: 20061208
  Serious: Yes (Life-Threatening, Hospitalization)
  Sender: FDA-Public Use
  Company Number: None

PATIENT
  Sex: Female
  Weight: 72.5755 kg

DRUGS (6)
  1. CARBOPLATIN [Suspect]
     Indication: OVARIAN CANCER
     Dosage: 446MG  Q28DAYS  IV
     Route: 042
     Dates: start: 20050201, end: 20050601
  2. CARBOPLATIN [Suspect]
     Indication: RECURRENT CANCER
     Dosage: 446MG  Q28DAYS  IV
     Route: 042
     Dates: start: 20050201, end: 20050601
  3. CARBOPLATIN [Suspect]
     Indication: OVARIAN CANCER
     Dosage: 446MG  Q28DAYS  IV
     Route: 042
     Dates: start: 20060429
  4. CARBOPLATIN [Suspect]
     Indication: RECURRENT CANCER
     Dosage: 446MG  Q28DAYS  IV
     Route: 042
     Dates: start: 20060429
  5. CARBOPLATIN [Suspect]
     Indication: OVARIAN CANCER
     Dosage: 446MG  Q28DAYS  IV
     Route: 042
     Dates: start: 20060525
  6. CARBOPLATIN [Suspect]
     Indication: RECURRENT CANCER
     Dosage: 446MG  Q28DAYS  IV
     Route: 042
     Dates: start: 20060525

REACTIONS (4)
  - ANAPHYLACTIC REACTION [None]
  - DYSPNOEA [None]
  - INFUSION RELATED REACTION [None]
  - PULSE PRESSURE DECREASED [None]
